FAERS Safety Report 7179414-5 (Version None)
Quarter: 2010Q4

REPORT INFORMATION
  Report Type: 
  Country: None (occurrence: None)
  Receive Date: 20101221
  Receipt Date: 20101217
  Transmission Date: 20110411
  Serious: Yes (Life-Threatening, Disabling, Other)
  Sender: FDA-Public Use
  Company Number: CA-ASTRAZENECA-2010SE56160

PATIENT
  Age: 52 Year
  Sex: Male
  Weight: 100.2 kg

DRUGS (2)
  1. ATACAND HCT [Suspect]
     Indication: HYPERTENSION
     Dosage: 16/12.5 MG ONCE DAILY
     Route: 048
     Dates: start: 20101101
  2. MICARDIS [Concomitant]

REACTIONS (5)
  - BLOOD PRESSURE INCREASED [None]
  - DIZZINESS POSTURAL [None]
  - DRUG INEFFECTIVE [None]
  - FLATULENCE [None]
  - GENERAL PHYSICAL CONDITION ABNORMAL [None]
